FAERS Safety Report 4421456-4 (Version None)
Quarter: 2004Q3

REPORT INFORMATION
  Report Type: 
  Country: None (occurrence: None)
  Receive Date: 20040712
  Receipt Date: 20040406
  Transmission Date: 20050211
  Serious: No
  Sender: FDA-Public Use
  Company Number: 2004-02-1388

PATIENT
  Age: 73 Year
  Sex: Female
  Weight: 58.9676 kg

DRUGS (2)
  1. CLARINEX [Suspect]
     Indication: NASOPHARYNGITIS
     Dosage: 5MG QD ORAL
     Route: 048
     Dates: start: 20040126, end: 20040126
  2. FLONASE [Suspect]
     Indication: NASAL POLYPS
     Dosage: DAILY

REACTIONS (2)
  - EPISTAXIS [None]
  - INTENTIONAL MISUSE [None]
